FAERS Safety Report 6602228-9 (Version None)
Quarter: 2010Q1

REPORT INFORMATION
  Report Type: 
  Country: None (occurrence: None)
  Receive Date: 20100218
  Receipt Date: 20100205
  Transmission Date: 20100710
  Serious: Yes (Other)
  Sender: FDA-Public Use
  Company Number: 233747J08USA

PATIENT
  Age: 53 Year
  Sex: Female

DRUGS (1)
  1. REBIF [Suspect]
     Indication: MULTIPLE SCLEROSIS
     Dosage: 44 MCG, 3 IN 1 WEEKS, SUBCUTANEOUS
     Route: 058
     Dates: start: 20080116

REACTIONS (6)
  - ABDOMINAL HERNIA [None]
  - HIATUS HERNIA [None]
  - PAIN [None]
  - RESPIRATORY TRACT INFECTION [None]
  - SCAR [None]
  - SEROMA [None]
